FAERS Safety Report 4727018-3 (Version None)
Quarter: 2005Q3

REPORT INFORMATION
  Report Type: 
  Country: None (occurrence: None)
  Receive Date: 20050726
  Receipt Date: 20050713
  Transmission Date: 20060218
  Serious: Yes (Other)
  Sender: FDA-Public Use
  Company Number: 2005102644

PATIENT
  Age: 53 Year
  Sex: Female

DRUGS (6)
  1. BEXTRA [Suspect]
     Indication: OSTEOARTHRITIS
     Dosage: 10 MG (10 MG, 1 IN 1 D)
     Dates: start: 20030401, end: 20050601
  2. BEXTRA [Suspect]
     Indication: SUTURE RELATED COMPLICATION
     Dosage: 10 MG (10 MG, 1 IN 1 D)
     Dates: start: 20030401, end: 20050601
  3. MOBIC [Suspect]
     Indication: ILL-DEFINED DISORDER
     Dates: start: 20050101
  4. PREMARIN [Concomitant]
  5. CENTRUM (MINIERALS NOS, VITAMINS NOS) [Concomitant]
  6. ALLEGRA [Concomitant]

REACTIONS (7)
  - ABDOMINAL DISCOMFORT [None]
  - ARTHRALGIA [None]
  - FLATULENCE [None]
  - GENITAL PROLAPSE [None]
  - MUSCULOSKELETAL STIFFNESS [None]
  - PROCEDURAL PAIN [None]
  - SLEEP DISORDER [None]
